FAERS Safety Report 10196032 (Version 1)
Quarter: 2014Q2

REPORT INFORMATION
  Report Type: Spontaneous
  Country: US (occurrence: US)
  Receive Date: 20140527
  Receipt Date: 20140527
  Transmission Date: 20141212
  Serious: Yes (Other)
  Sender: FDA-Public Use
  Company Number: US-PFIZER INC-2014141005

PATIENT
  Age: 77 Year
  Sex: Male

DRUGS (2)
  1. GABAPENTIN [Suspect]
     Indication: NEURALGIA
     Dosage: 400 MG, 2X/DAY
     Route: 048
  2. GABAPENTIN [Suspect]
     Indication: NEUROPATHY PERIPHERAL
     Dosage: 2000 MG, DAILY

REACTIONS (5)
  - Intentional product misuse [Unknown]
  - Rectal haemorrhage [Unknown]
  - Dizziness [Unknown]
  - Drug effect incomplete [Unknown]
  - Insomnia [Unknown]
